FAERS Safety Report 9675489 (Version 3)
Quarter: 2015Q1

REPORT INFORMATION
  Report Type: Spontaneous
  Country: US (occurrence: US)
  Receive Date: 20131107
  Receipt Date: 20150227
  Transmission Date: 20150721
  Serious: Yes (Other)
  Sender: FDA-Public Use
  Company Number: US-BAYER-2013-132447

PATIENT
  Age: 37 Year
  Sex: Female

DRUGS (3)
  1. NITROFURANTOIN. [Concomitant]
     Active Substance: NITROFURANTOIN
  2. MIRENA [Suspect]
     Active Substance: LEVONORGESTREL
     Indication: CONTRACEPTION
     Dosage: 20 MCG/24HR, CONT
     Route: 015
     Dates: start: 20100715, end: 20120725
  3. BACTRIM [Concomitant]
     Active Substance: SULFAMETHOXAZOLE\TRIMETHOPRIM
     Indication: URINARY TRACT INFECTION

REACTIONS (9)
  - Uterine perforation [None]
  - Procedural pain [None]
  - Device issue [None]
  - Dyspareunia [None]
  - Injury [None]
  - General physical health deterioration [None]
  - Medical device discomfort [None]
  - Pain [None]
  - Emotional distress [None]

NARRATIVE: CASE EVENT DATE: 2012
